FAERS Safety Report 8310722-8 (Version None)
Quarter: 2012Q2

REPORT INFORMATION
  Report Type: 
  Country: None (occurrence: None)
  Receive Date: 20120425
  Receipt Date: 20120418
  Transmission Date: 20120825
  Serious: Yes (Other)
  Sender: FDA-Public Use
  Company Number: US-JNJFOC-20120408692

PATIENT
  Sex: Female
  Weight: 84.37 kg

DRUGS (2)
  1. SIMPONI [Suspect]
     Indication: RHEUMATOID ARTHRITIS
     Route: 058
     Dates: start: 20110401
  2. METHOTREXATE [Concomitant]
     Indication: RHEUMATOID ARTHRITIS
     Dates: start: 20120401

REACTIONS (4)
  - DEVICE FAILURE [None]
  - URINARY TRACT INFECTION [None]
  - NEPHROLITHIASIS [None]
  - DRUG DOSE OMISSION [None]
